FAERS Safety Report 7562726-0 (Version None)
Quarter: 2011Q2

REPORT INFORMATION
  Report Type: 
  Country: None (occurrence: None)
  Receive Date: 20110622
  Receipt Date: 20110611
  Transmission Date: 20111010
  Serious: Yes (Other)
  Sender: FDA-Public Use
  Company Number: FR-PFIZER INC-2011128793

PATIENT
  Age: 53 Year
  Sex: Male

DRUGS (5)
  1. LERCANIDIPINE [Concomitant]
     Indication: HYPERTENSION
     Route: 048
  2. HYTACAND [Concomitant]
     Indication: HYPERTENSION
     Route: 048
  3. CODOLIPRANE [Concomitant]
     Indication: HEADACHE
     Dosage: 2 BOXES DAILY
     Route: 048
  4. ATARAX [Suspect]
     Dosage: 9 DF, IN 3-4 HOURS
     Route: 048
     Dates: start: 20110602, end: 20110602
  5. ATARAX [Suspect]
     Indication: ANXIETY
     Dosage: 25 MG, 3X/DAY
     Route: 048
     Dates: start: 20110531, end: 20110601

REACTIONS (9)
  - LOSS OF CONSCIOUSNESS [None]
  - AMNESIA [None]
  - OVERDOSE [None]
  - LIMB INJURY [None]
  - DRUG WITHDRAWAL HEADACHE [None]
  - INSOMNIA [None]
  - NEGATIVE THOUGHTS [None]
  - DYSPNOEA [None]
  - CONFUSIONAL STATE [None]
